FAERS Safety Report 8538351 (Version 5)
Quarter: 2012Q4

REPORT INFORMATION
  Report Type: 
  Country: US (occurrence: US)
  Receive Date: 20120501
  Receipt Date: 20121204
  Transmission Date: 20130627
  Serious: Yes (Death)
  Sender: FDA-Public Use
  Company Number: US-BIOGENIDEC-2012BI014237

PATIENT
  Age: 45 Year
  Sex: Male
  Weight: 99 kg

DRUGS (1)
  1. TYSABRI [Suspect]
     Indication: MULTIPLE SCLEROSIS
     Route: 042
     Dates: start: 20110420, end: 20120321

REACTIONS (2)
  - Completed suicide [Fatal]
  - Intentional overdose [Fatal]
